FAERS Safety Report 7450458-9 (Version None)
Quarter: 2011Q2

REPORT INFORMATION
  Report Type: 
  Country: None (occurrence: None)
  Receive Date: 20110502
  Receipt Date: 20110418
  Transmission Date: 20111010
  Serious: Yes (Hospitalization, Other)
  Sender: FDA-Public Use
  Company Number: PHHY2010US66698

PATIENT
  Sex: Female

DRUGS (1)
  1. RECLAST [Suspect]
     Dosage: 5 MG, UNK
     Route: 042
     Dates: start: 20091101

REACTIONS (6)
  - PAIN [None]
  - HIP FRACTURE [None]
  - PELVIC FRACTURE [None]
  - SPINAL COLUMN INJURY [None]
  - FALL [None]
  - DRUG INEFFECTIVE [None]
